FAERS Safety Report 21349914 (Version 1)
Quarter: 2022Q3

REPORT INFORMATION
  Report Type: Spontaneous
  Country: US (occurrence: None)
  Receive Date: 20220917
  Receipt Date: 20220917
  Transmission Date: 20221027
  Serious: No
  Sender: FDA-Public Use
  Company Number: None

PATIENT
  Age: 30 Year
  Sex: Female
  Weight: 74.7 kg

DRUGS (1)
  1. ETONOGESTREL [Suspect]
     Active Substance: ETONOGESTREL
     Indication: Contraception
     Dosage: OTHER QUANTITY : 1 SUBDERMAL IMPLANT?
     Route: 058
     Dates: start: 20190515, end: 20220515

REACTIONS (3)
  - Anger [None]
  - Screaming [None]
  - Feeling abnormal [None]

NARRATIVE: CASE EVENT DATE: 20190901
